FAERS Safety Report 10764406 (Version 4)
Quarter: 2016Q4

REPORT INFORMATION
  Report Type: Spontaneous
  Country: US (occurrence: US)
  Receive Date: 20150205
  Receipt Date: 20161108
  Transmission Date: 20170206
  Serious: No
  Sender: FDA-Public Use
  Company Number: US-ASTRAZENECA-2015SE08608

PATIENT
  Age: 68 Year
  Sex: Female
  Weight: 72.6 kg

DRUGS (8)
  1. DIGAMOX [Concomitant]
  2. LISINOPRIL. [Suspect]
     Active Substance: LISINOPRIL
     Indication: ASTHMA
     Route: 048
     Dates: start: 2012
  3. SYMBICORT [Suspect]
     Active Substance: BUDESONIDE\FORMOTEROL FUMARATE DIHYDRATE
     Indication: ASTHMA
     Dosage: 160/4.5, 2 PUFFS BID
     Route: 055
     Dates: start: 2015
  4. SYNTHROID [Concomitant]
     Active Substance: LEVOTHYROXINE SODIUM
     Indication: THYROID DISORDER
  5. OCCUVITE [Concomitant]
     Indication: EYE DISORDER
     Dosage: DAILY
  6. TUDORZA PRESSAIR [Suspect]
     Active Substance: ACLIDINIUM BROMIDE
     Indication: ASTHMA
     Dosage: 400 MCG 60 METERED DOSE INHALER, ONE PUFF TWICE A DAY
     Route: 055
     Dates: start: 2015
  7. LVOTHROXINE [Concomitant]
     Indication: BLOOD PRESSURE MEASUREMENT
     Dosage: 88 MCG DAILY
     Route: 048
     Dates: start: 1991
  8. SYMBICORT [Suspect]
     Active Substance: BUDESONIDE\FORMOTEROL FUMARATE DIHYDRATE
     Indication: ASTHMA
     Dosage: 160/4.5, 2 PUFFS BID
     Route: 055
     Dates: start: 201412, end: 201501

REACTIONS (19)
  - Vomiting [Unknown]
  - Productive cough [Recovering/Resolving]
  - Pain [Unknown]
  - Vision blurred [Recovering/Resolving]
  - Influenza [Unknown]
  - Asthenia [Unknown]
  - Lethargy [Unknown]
  - Visual impairment [Unknown]
  - Intentional product misuse [Unknown]
  - Upper-airway cough syndrome [Unknown]
  - Cough [Recovering/Resolving]
  - Product use issue [Unknown]
  - Overdose [Unknown]
  - Hypersensitivity [Unknown]
  - Macular degeneration [Unknown]
  - Malaise [Unknown]
  - Lip swelling [Unknown]
  - Device issue [Unknown]
  - Off label use [Unknown]

NARRATIVE: CASE EVENT DATE: 2012
